FAERS Safety Report 7715024-6 (Version None)
Quarter: 2011Q3

REPORT INFORMATION
  Report Type: 
  Country: None (occurrence: None)
  Receive Date: 20110829
  Receipt Date: 20110701
  Transmission Date: 20111222
  Serious: Yes (Hospitalization)
  Sender: FDA-Public Use
  Company Number: US-ASTRAZENECA-2011SE39785

PATIENT
  Age: 70 Year
  Sex: Female

DRUGS (1)
  1. VIMOVO [Suspect]
     Route: 048
     Dates: start: 20110625

REACTIONS (1)
  - RECTAL HAEMORRHAGE [None]
